FAERS Safety Report 5219969-0 (Version None)
Quarter: 2007Q1

REPORT INFORMATION
  Report Type: 
  Country: None (occurrence: None)
  Receive Date: 20070124
  Receipt Date: 20070124
  Transmission Date: 20070707
  Serious: Yes (Other)
  Sender: FDA-Public Use
  Company Number: None

PATIENT
  Age: 51 Year
  Sex: Male
  Weight: 102.5 kg

DRUGS (12)
  1. HYDROMORPHONE HCL [Suspect]
  2. ACETAMINOPHEN [Concomitant]
  3. PEGINTERFER ALFA-2A [Concomitant]
  4. HYDROMORPHONE HCL [Concomitant]
  5. ACETAMINOPHEN [Concomitant]
  6. CLOTRIMAZOLE [Concomitant]
  7. IBUPROFEN [Concomitant]
  8. HYDROCORTISONE [Concomitant]
  9. OMEPRAZOLE [Concomitant]
  10. FLUNISOLIDE [Concomitant]
  11. RIBAVIRIN [Concomitant]
  12. AMPICILLIN SODIUM/SULBACTAM SODIUM [Concomitant]

REACTIONS (1)
  - THROAT TIGHTNESS [None]
